FAERS Safety Report 26043755 (Version 2)
Quarter: 2025Q4

REPORT INFORMATION
  Report Type: Report from Study
  Country: JP (occurrence: JP)
  Receive Date: 20251113
  Receipt Date: 20251128
  Transmission Date: 20260119
  Serious: Yes (Death, Other)
  Sender: BAXTER
  Company Number: JP-shionogi-202500011895

PATIENT

DRUGS (1)
  1. CYCLOPHOSPHAMIDE [Suspect]
     Active Substance: CYCLOPHOSPHAMIDE
     Indication: Product used for unknown indication
     Route: 065

REACTIONS (1)
  - Cardiac failure acute [Fatal]
